FAERS Safety Report 4796568-6 (Version None)
Quarter: 2005Q4

REPORT INFORMATION
  Report Type: 
  Country: None (occurrence: None)
  Receive Date: 20051011
  Receipt Date: 20050125
  Transmission Date: 20060501
  Serious: Yes (Other)
  Sender: FDA-Public Use
  Company Number: US-JNJFOC-20041007712

PATIENT
  Age: 30 Year
  Sex: Female
  Weight: 65.318 kg

DRUGS (2)
  1. ULTRACET [Suspect]
     Dosage: 2 DOSE(S), 1 IN 8 HOUR, ORAL
     Route: 048
     Dates: start: 20041019
  2. FLEXERIL [Suspect]
     Indication: BACK PAIN
     Dosage: 3 IN 1 DAY
     Dates: start: 20041019

REACTIONS (1)
  - CONVULSION [None]
